FAERS Safety Report 5257888-4 (Version None)
Quarter: 2007Q1

REPORT INFORMATION
  Report Type: 
  Country: None (occurrence: None)
  Receive Date: 20070307
  Receipt Date: 20061005
  Transmission Date: 20070707
  Serious: No
  Sender: FDA-Public Use
  Company Number: US-GLAXOSMITHKLINE-A0622664A

PATIENT
  Sex: Female

DRUGS (2)
  1. REQUIP [Suspect]
     Indication: RESTLESS LEGS SYNDROME
     Route: 048
  2. MIRAPEX [Suspect]
     Indication: RESTLESS LEGS SYNDROME
     Route: 065

REACTIONS (5)
  - ADVERSE EVENT [None]
  - HEADACHE [None]
  - HEART RATE INCREASED [None]
  - NERVOUSNESS [None]
  - THERAPEUTIC RESPONSE UNEXPECTED [None]
